FAERS Safety Report 22031827 (Version 2)
Quarter: 2023Q1

REPORT INFORMATION
  Report Type: Spontaneous
  Country: US (occurrence: US)
  Receive Date: 20230224
  Receipt Date: 20230303
  Transmission Date: 20230418
  Serious: No
  Sender: FDA-Public Use
  Company Number: US-JNJFOC-20230250429

PATIENT

DRUGS (5)
  1. TYLENOL 8HR [Suspect]
     Active Substance: ACETAMINOPHEN
     Indication: Neck pain
     Route: 065
  2. TYLENOL 8HR [Suspect]
     Active Substance: ACETAMINOPHEN
     Indication: Back pain
  3. TYLENOL 8HR [Suspect]
     Active Substance: ACETAMINOPHEN
     Indication: Arthralgia
  4. TYLENOL 8HR [Suspect]
     Active Substance: ACETAMINOPHEN
     Indication: Pain
  5. TYLENOL 8HR [Suspect]
     Active Substance: ACETAMINOPHEN
     Indication: Pain

REACTIONS (1)
  - Therapeutic product effect incomplete [Unknown]
